FAERS Safety Report 15323454 (Version 2)
Quarter: 2018Q4

REPORT INFORMATION
  Report Type: Spontaneous
  Country: US (occurrence: US)
  Receive Date: 20180827
  Receipt Date: 20181005
  Transmission Date: 20190204
  Serious: No
  Sender: FDA-Public Use
  Company Number: US-SA-2018SA238659

PATIENT
  Age: 50 Year
  Sex: Male

DRUGS (1)
  1. TOUJEO [Suspect]
     Active Substance: INSULIN GLARGINE
     Indication: TYPE 2 DIABETES MELLITUS
     Dosage: 150 IU, QD

REACTIONS (5)
  - Product contamination [Unknown]
  - Drug ineffective [Unknown]
  - Vision blurred [Unknown]
  - Glycosylated haemoglobin [Unknown]
  - Blood glucose increased [Unknown]
